FAERS Safety Report 23468149 (Version 6)
Quarter: 2025Q1

REPORT INFORMATION
  Report Type: Report from Study
  Country: US (occurrence: US)
  Receive Date: 20240201
  Receipt Date: 20250314
  Transmission Date: 20250409
  Serious: No
  Sender: ALEXION PHARMACEUTICALS
  Company Number: US-ALXN-202401USA001840US

PATIENT

DRUGS (1)
  1. STRENSIQ [Suspect]
     Active Substance: ASFOTASE ALFA
     Indication: Hypophosphatasia
     Dosage: 200 MILLIGRAM, TIW

REACTIONS (8)
  - Bone pain [Unknown]
  - Back pain [Unknown]
  - Arthralgia [Recovered/Resolved]
  - Product physical consistency issue [Unknown]
  - Pain [Unknown]
  - Injection site pain [Not Recovered/Not Resolved]
  - Fatigue [Unknown]
  - Product dose omission issue [Unknown]
